FAERS Safety Report 8267004-2 (Version None)
Quarter: 2012Q2

REPORT INFORMATION
  Report Type: 
  Country: None (occurrence: None)
  Receive Date: 20120409
  Receipt Date: 20120403
  Transmission Date: 20120825
  Serious: No
  Sender: FDA-Public Use
  Company Number: US-PFIZER INC-2012084438

PATIENT

DRUGS (2)
  1. LYRICA [Suspect]
     Indication: SPONDYLITIS
  2. LYRICA [Suspect]
     Indication: PAIN IN EXTREMITY
     Dosage: UNK
     Dates: start: 20120101, end: 20120101

REACTIONS (1)
  - MUSCULAR WEAKNESS [None]
